FAERS Safety Report 15088262 (Version 1)
Quarter: 2018Q2

REPORT INFORMATION
  Report Type: Report from Study
  Country: None (occurrence: US)
  Receive Date: 20180629
  Receipt Date: 20180629
  Transmission Date: 20180711
  Serious: Yes (Other)
  Sender: FDA-Public Use
  Company Number: CA-ABBVIE-18K-028-2401117-00

PATIENT
  Sex: Female

DRUGS (1)
  1. HUMIRA [Suspect]
     Active Substance: ADALIMUMAB
     Indication: CROHN^S DISEASE
     Route: 058
     Dates: start: 20171124, end: 20180608

REACTIONS (7)
  - Dry eye [Not Recovered/Not Resolved]
  - Hypertension [Unknown]
  - Injection site erythema [Recovered/Resolved]
  - Vitreous haemorrhage [Not Recovered/Not Resolved]
  - Glucose tolerance impaired [Unknown]
  - Keratorhexis [Not Recovered/Not Resolved]
  - Injection site pruritus [Recovered/Resolved]

NARRATIVE: CASE EVENT DATE: 2018
